FAERS Safety Report 18130393 (Version 1)
Quarter: 2020Q3

REPORT INFORMATION
  Report Type: Report from Study
  Country: BR (occurrence: BR)
  Receive Date: 20200810
  Receipt Date: 20200810
  Transmission Date: 20201103
  Serious: Yes (Other)
  Sender: FDA-Public Use
  Company Number: BR-SHIRE-BR201918290

PATIENT
  Sex: Male
  Weight: 79 kg

DRUGS (4)
  1. FEIBA NF [Suspect]
     Active Substance: ANTI-INHIBITOR COAGULANT COMPLEX
     Indication: HAEMOPHILIA
     Dosage: UNK UNK, AS REQ^D
     Route: 050
  2. FEIBA NF [Suspect]
     Active Substance: ANTI-INHIBITOR COAGULANT COMPLEX
     Dosage: 6000 INTERNATIONAL UNIT, 3X A WEEK
     Route: 050
     Dates: start: 20040601
  3. FACTOR VII [Concomitant]
     Active Substance: COAGULATION FACTOR VII HUMAN
     Indication: PRODUCT USED FOR UNKNOWN INDICATION
  4. FEIBA NF [Suspect]
     Active Substance: ANTI-INHIBITOR COAGULANT COMPLEX
     Dosage: 8000 INTERNATIONAL UNIT, 3X A WEEK
     Route: 042
     Dates: start: 20040601

REACTIONS (3)
  - Aneurysm [Recovered/Resolved]
  - Hemiplegia [Recovered/Resolved]
  - Drug ineffective [Recovered/Resolved]
